FAERS Safety Report 8964182 (Version 2)
Quarter: 2013Q1

REPORT INFORMATION
  Report Type: Spontaneous
  Country: US (occurrence: US)
  Receive Date: 20121214
  Receipt Date: 20130214
  Transmission Date: 20140127
  Serious: No
  Sender: FDA-Public Use
  Company Number: US-PFIZER INC-2012310034

PATIENT
  Age: 9 Year
  Sex: Female
  Weight: 21.76 kg

DRUGS (2)
  1. GENOTROPIN [Suspect]
     Indication: TURNER^S SYNDROME
     Dosage: 1 MG, 1X/DAY
     Route: 058
     Dates: start: 20121128
  2. GENOTROPIN [Suspect]
     Dosage: 1 MG, 1X/DAY
     Route: 058
     Dates: start: 20121218

REACTIONS (4)
  - Rash erythematous [Recovered/Resolved]
  - Pruritus [Recovered/Resolved]
  - Scratch [Recovered/Resolved]
  - Urticaria [Recovered/Resolved]
